FAERS Safety Report 7930911-1 (Version None)
Quarter: 2011Q4

REPORT INFORMATION
  Report Type: 
  Country: None (occurrence: None)
  Receive Date: 20111118
  Receipt Date: 20111118
  Transmission Date: 20120403
  Serious: Yes (Hospitalization)
  Sender: FDA-Public Use
  Company Number: None

PATIENT
  Sex: Female
  Weight: 69 kg

DRUGS (2)
  1. DOXORUBICIN HCL [Suspect]
     Dosage: 120 MG
  2. CYCLOPHOSPHAMIDE [Suspect]
     Dosage: 1020 MG

REACTIONS (4)
  - LOWER LIMB FRACTURE [None]
  - NEUTROPENIA [None]
  - FALL [None]
  - SYNCOPE [None]
